FAERS Safety Report 9550556 (Version 2)
Quarter: 2014Q2

REPORT INFORMATION
  Report Type: Spontaneous
  Country: US (occurrence: US)
  Receive Date: 20130924
  Receipt Date: 20140402
  Transmission Date: 20141212
  Serious: No
  Sender: FDA-Public Use
  Company Number: US-SANOFI-AVENTIS-2013SA033464

PATIENT
  Age: 52 Year
  Sex: Male
  Weight: 74.84 kg

DRUGS (1)
  1. AUBAGIO [Suspect]
     Indication: MULTIPLE SCLEROSIS
     Route: 048
     Dates: start: 20130227

REACTIONS (3)
  - Dysuria [Recovered/Resolved]
  - Urine abnormality [Recovered/Resolved]
  - Device occlusion [Recovered/Resolved]
